FAERS Safety Report 14140287 (Version 3)
Quarter: 2018Q2

REPORT INFORMATION
  Report Type: Spontaneous
  Country: GB (occurrence: GB)
  Receive Date: 20171030
  Receipt Date: 20180423
  Transmission Date: 20180711
  Serious: Yes (Death, Other)
  Sender: FDA-Public Use
  Company Number: GB-ACCORD-060333

PATIENT
  Age: 29 Year
  Sex: Male

DRUGS (4)
  1. LYRICA [Suspect]
     Active Substance: PREGABALIN
     Dosage: UNK
  2. TRAMADOL/TRAMADOL HYDROCHLORIDE [Suspect]
     Active Substance: TRAMADOL HYDROCHLORIDE
  3. DIAZEPAM. [Suspect]
     Active Substance: DIAZEPAM
     Dosage: UNK
  4. TRAMADOL SANDOZ [Suspect]
     Active Substance: TRAMADOL

REACTIONS (10)
  - Contraindicated product administered [Unknown]
  - Eye contusion [Unknown]
  - Abnormal behaviour [Unknown]
  - Aggression [Unknown]
  - Alcohol poisoning [None]
  - Multiple injuries [None]
  - Intentional product misuse [Unknown]
  - Completed suicide [Fatal]
  - Contusion [None]
  - Blood alcohol increased [Unknown]

NARRATIVE: CASE EVENT DATE: 20170811
